FAERS Safety Report 9332448 (Version 2)
Quarter: 2013Q2

REPORT INFORMATION
  Report Type: Report from Study
  Country: CH (occurrence: CH)
  Receive Date: 20130606
  Receipt Date: 20130610
  Transmission Date: 20140414
  Serious: Yes (Hospitalization)
  Sender: FDA-Public Use
  Company Number: CH-ROCHE-1200459

PATIENT
  Age: 73 Year
  Sex: Male

DRUGS (3)
  1. RITUXIMAB [Suspect]
     Indication: LYMPHOMA
     Dosage: LAST DOSE PRIOR TO SAE: 18/FEB/2013
     Route: 042
     Dates: start: 20130218
  2. BENDAMUSTINE [Suspect]
     Indication: LYMPHOMA
     Dosage: LAST DOSE PRIOR TO SAE: 19/FEB/2013
     Route: 042
     Dates: start: 20130218
  3. LENALIDOMIDE [Suspect]
     Indication: LYMPHOMA
     Dosage: DATE OF LAST DOSE PRIOR TO SAE: 07/MAR/2013
     Route: 048
     Dates: start: 20130218

REACTIONS (3)
  - Pyrexia [Recovered/Resolved]
  - Ventricular tachycardia [Recovered/Resolved]
  - Arthritis [Recovered/Resolved]
